FAERS Safety Report 7336677-0 (Version None)
Quarter: 2011Q1

REPORT INFORMATION
  Report Type: 
  Country: None (occurrence: None)
  Receive Date: 20110308
  Receipt Date: 20110301
  Transmission Date: 20110831
  Serious: Yes (Hospitalization)
  Sender: FDA-Public Use
  Company Number: US-BIOGENIDEC-2011BI002758

PATIENT
  Age: 55 Year
  Sex: Female

DRUGS (1)
  1. TYSABRI [Suspect]
     Indication: MULTIPLE SCLEROSIS
     Route: 042
     Dates: start: 20080219

REACTIONS (6)
  - CYSTITIS [None]
  - ABASIA [None]
  - URINARY TRACT INFECTION [None]
  - BODY TEMPERATURE [None]
  - DECREASED IMMUNE RESPONSIVENESS [None]
  - PHARYNGITIS [None]
